FAERS Safety Report 10603127 (Version 4)
Quarter: 2015Q2

REPORT INFORMATION
  Report Type: Spontaneous
  Country: US (occurrence: US)
  Receive Date: 20141124
  Receipt Date: 20150401
  Transmission Date: 20150821
  Serious: Yes (Hospitalization)
  Sender: FDA-Public Use
  Company Number: US-PFIZER INC-2014321367

PATIENT
  Age: 77 Year
  Sex: Male

DRUGS (1)
  1. SUTENT [Suspect]
     Active Substance: SUNITINIB MALATE
     Indication: RENAL CELL CARCINOMA
     Dosage: 50 MG ONCE DAILY (4 WEEKS ON, THEN 2 WEEKS OFF)
     Route: 048
     Dates: start: 20120925, end: 20130116

REACTIONS (4)
  - Aphasia [Recovered/Resolved]
  - Drug hypersensitivity [Recovered/Resolved]
  - Renal cell carcinoma [Recovered/Resolved]
  - Disease progression [Recovered/Resolved]

NARRATIVE: CASE EVENT DATE: 201209
